FAERS Safety Report 8015648-5 (Version None)
Quarter: 2011Q4

REPORT INFORMATION
  Report Type: 
  Country: None (occurrence: None)
  Receive Date: 20111230
  Receipt Date: 20111229
  Transmission Date: 20120403
  Serious: No
  Sender: FDA-Public Use
  Company Number: US-BAYER-2011-089433

PATIENT
  Sex: Female

DRUGS (1)
  1. MIRENA [Suspect]
     Dosage: 20 MCG/24HR, CONT
     Route: 015

REACTIONS (7)
  - VISUAL ACUITY REDUCED [None]
  - FATIGUE [None]
  - ANXIETY [None]
  - HYPOAESTHESIA [None]
  - VISUAL IMPAIRMENT [None]
  - DISTURBANCE IN ATTENTION [None]
  - DEPRESSION [None]
